FAERS Safety Report 4598738-9 (Version None)
Quarter: 2005Q1

REPORT INFORMATION
  Report Type: 
  Country: None (occurrence: None)
  Receive Date: 20050304
  Receipt Date: 20050221
  Transmission Date: 20050727
  Serious: Yes (Other)
  Sender: FDA-Public Use
  Company Number: DK-GLAXOSMITHKLINE-B0372963A

PATIENT
  Sex: Female

DRUGS (1)
  1. SERETIDE [Suspect]
     Dates: start: 20050121

REACTIONS (8)
  - CONVULSION [None]
  - EYE PAIN [None]
  - EYE SWELLING [None]
  - HEADACHE [None]
  - LACRIMATION INCREASED [None]
  - ORAL FUNGAL INFECTION [None]
  - OROPHARYNGITIS FUNGAL [None]
  - PALPITATIONS [None]
